FAERS Safety Report 14784298 (Version 1)
Quarter: 2018Q2

REPORT INFORMATION
  Report Type: Spontaneous
  Country: US (occurrence: US)
  Receive Date: 20180420
  Receipt Date: 20180420
  Transmission Date: 20180711
  Serious: No
  Sender: FDA-Public Use
  Company Number: None

PATIENT
  Age: 50 Year
  Sex: Male

DRUGS (1)
  1. POWDERED KRATOM [Suspect]
     Active Substance: MITRAGYNINE\HERBALS
     Dates: start: 20180412, end: 20180412

REACTIONS (7)
  - Muscle spasms [None]
  - Nausea [None]
  - Diarrhoea [None]
  - Vomiting [None]
  - Chills [None]
  - Ill-defined disorder [None]
  - Pain [None]

NARRATIVE: CASE EVENT DATE: 20180413
